FAERS Safety Report 8609853 (Version 2)
Quarter: 2013Q2

REPORT INFORMATION
  Report Type: Spontaneous
  Country: GB (occurrence: GB)
  Receive Date: 20120612
  Receipt Date: 20130619
  Transmission Date: 20140414
  Serious: Yes (Death, Other)
  Sender: FDA-Public Use
  Company Number: GB-JNJFOC-20120601429

PATIENT
  Age: 16 Year
  Sex: Male

DRUGS (4)
  1. PARACETAMOL [Suspect]
     Route: 065
  2. PARACETAMOL [Suspect]
     Indication: PRODUCT USED FOR UNKNOWN INDICATION
     Route: 065
  3. CHLORPHENAMINE [Suspect]
     Indication: PRODUCT USED FOR UNKNOWN INDICATION
     Route: 065
  4. ISOTRETINOIN [Suspect]
     Indication: ACNE
     Route: 048
     Dates: start: 201005

REACTIONS (15)
  - Completed suicide [Fatal]
  - Suicide attempt [Recovered/Resolved]
  - Lip dry [Unknown]
  - Erythema [Unknown]
  - Erythema [Unknown]
  - Gastric infection [Unknown]
  - Localised infection [Unknown]
  - Ingrowing nail [Unknown]
  - Pain in extremity [Unknown]
  - Overdose [Unknown]
  - Personality change [Unknown]
  - Scar [Unknown]
  - Dry skin [Unknown]
  - Oropharyngeal pain [Unknown]
  - Suicidal ideation [Unknown]
